FAERS Safety Report 7845985-6 (Version None)
Quarter: 2011Q4

REPORT INFORMATION
  Report Type: 
  Country: None (occurrence: None)
  Receive Date: 20111025
  Receipt Date: 20111018
  Transmission Date: 20120403
  Serious: Yes (Hospitalization)
  Sender: FDA-Public Use
  Company Number: FR-ABBOTT-11P-056-0866422-00

PATIENT
  Age: 26 Year
  Sex: Male

DRUGS (2)
  1. SOLIAN [Suspect]
     Indication: AGITATION
     Route: 048
     Dates: start: 20110819, end: 20110820
  2. DEPAKOTE [Suspect]
     Indication: AFFECTIVE DISORDER
     Route: 048
     Dates: start: 20110819, end: 20110820

REACTIONS (1)
  - ANGIOEDEMA [None]
